FAERS Safety Report 21988020 (Version 1)
Quarter: 2023Q1

REPORT INFORMATION
  Report Type: Report from Study
  Country: CO (occurrence: CO)
  Receive Date: 20230214
  Receipt Date: 20230214
  Transmission Date: 20230417
  Serious: Yes (Hospitalization)
  Sender: FDA-Public Use
  Company Number: CO-ABBVIE-4305920

PATIENT
  Age: 46 Year
  Sex: Female
  Weight: 41 kg

DRUGS (1)
  1. ZEMPLAR [Suspect]
     Active Substance: PARICALCITOL
     Indication: Chronic kidney disease
     Route: 042
     Dates: start: 20160120, end: 20221128

REACTIONS (7)
  - Infected cyst [Recovering/Resolving]
  - Pyrexia [Not Recovered/Not Resolved]
  - Cyst rupture [Not Recovered/Not Resolved]
  - Drug hypersensitivity [Recovering/Resolving]
  - Pruritus allergic [Not Recovered/Not Resolved]
  - Dermatitis allergic [Not Recovered/Not Resolved]
  - Abdominal pain lower [Not Recovered/Not Resolved]

NARRATIVE: CASE EVENT DATE: 20230206
